FAERS Safety Report 6968574-4 (Version None)
Quarter: 2010Q3

REPORT INFORMATION
  Report Type: 
  Country: None (occurrence: None)
  Receive Date: 20100907
  Receipt Date: 20100901
  Transmission Date: 20110219
  Serious: Yes (Other)
  Sender: FDA-Public Use
  Company Number: US-ROCHE-724864

PATIENT
  Age: 66 Year
  Sex: Female

DRUGS (4)
  1. KLONOPIN [Suspect]
     Indication: ANXIETY
     Dosage: TAKEN FOR MANY YEARS
     Route: 065
  2. CHANTIX [Interacting]
     Indication: SMOKING CESSATION THERAPY
     Dosage: FORM:FILM COATED TABLET
     Route: 065
     Dates: start: 20100808, end: 20100810
  3. REMERON [Interacting]
     Indication: DEPRESSION
     Dosage: TAKEN FOR MANY YEARS
     Route: 065
  4. TRAMADOL HCL [Interacting]
     Indication: PAIN
     Dosage: POSSIBLY STARTED IN 2010
     Route: 065

REACTIONS (7)
  - ARTHRALGIA [None]
  - BACK PAIN [None]
  - DISTURBANCE IN ATTENTION [None]
  - DRUG INTERACTION [None]
  - INSOMNIA [None]
  - NAUSEA [None]
  - RESTLESSNESS [None]
